FAERS Safety Report 15662434 (Version 2)
Quarter: 2018Q4

REPORT INFORMATION
  Report Type: Report from Study
  Country: CZ (occurrence: CZ)
  Receive Date: 20181127
  Receipt Date: 20181213
  Transmission Date: 20190205
  Serious: Yes (Hospitalization)
  Sender: FDA-Public Use
  Company Number: CZ-B.I. PHARMACEUTICALS,INC./RIDGEFIELD-2018-BI-056075

PATIENT
  Age: 80 Year
  Sex: Female

DRUGS (9)
  1. SPIRONOLAKTON [Concomitant]
     Active Substance: SPIRONOLACTONE
     Indication: PRODUCT USED FOR UNKNOWN INDICATION
     Route: 065
  2. FUROSEMID [Concomitant]
     Active Substance: FUROSEMIDE
     Indication: PRODUCT USED FOR UNKNOWN INDICATION
     Route: 065
  3. PRADAXA [Suspect]
     Active Substance: DABIGATRAN ETEXILATE MESYLATE
     Indication: ATRIAL FIBRILLATION
  4. AMLODIPIN [Concomitant]
     Active Substance: AMLODIPINE BESYLATE
     Indication: PRODUCT USED FOR UNKNOWN INDICATION
     Route: 065
  5. TRAZODON [Concomitant]
     Active Substance: TRAZODONE HYDROCHLORIDE
     Indication: PRODUCT USED FOR UNKNOWN INDICATION
     Route: 065
  6. BISOPROLOL [Concomitant]
     Active Substance: BISOPROLOL
     Indication: PRODUCT USED FOR UNKNOWN INDICATION
     Route: 065
  7. PROPAFENON [Concomitant]
     Active Substance: PROPAFENONE
     Indication: PRODUCT USED FOR UNKNOWN INDICATION
     Route: 065
  8. PRADAXA [Suspect]
     Active Substance: DABIGATRAN ETEXILATE MESYLATE
     Indication: CEREBROVASCULAR ACCIDENT PROPHYLAXIS
     Route: 048
  9. PERINDOPRIL [Concomitant]
     Active Substance: PERINDOPRIL
     Indication: PRODUCT USED FOR UNKNOWN INDICATION
     Route: 065

REACTIONS (9)
  - Acute kidney injury [Recovered/Resolved]
  - Abdominal pain [Recovered/Resolved]
  - Dehydration [Recovered/Resolved]
  - Orthostatic hypotension [Recovered/Resolved]
  - Vertigo [Recovered/Resolved]
  - Renal impairment [Recovered/Resolved]
  - Diarrhoea [Recovered/Resolved]
  - Hypocoagulable state [Recovered/Resolved]
  - Gastritis haemorrhagic [Recovered/Resolved]

NARRATIVE: CASE EVENT DATE: 2018
